FAERS Safety Report 10680721 (Version 2)
Quarter: 2015Q2

REPORT INFORMATION
  Report Type: Spontaneous
  Country: US (occurrence: US)
  Receive Date: 20141229
  Receipt Date: 20150528
  Transmission Date: 20150821
  Serious: Yes (Hospitalization, Other)
  Sender: FDA-Public Use
  Company Number: US-SA-2014SA151804

PATIENT
  Age: 63 Year
  Sex: Female

DRUGS (11)
  1. PRILOSEC [Concomitant]
     Active Substance: OMEPRAZOLE MAGNESIUM
  2. PLAVIX [Suspect]
     Active Substance: CLOPIDOGREL BISULFATE
     Indication: STENT PLACEMENT
     Route: 048
     Dates: start: 20060401, end: 20090916
  3. FORADIL [Concomitant]
     Active Substance: FORMOTEROL FUMARATE
  4. COREG [Concomitant]
     Active Substance: CARVEDILOL
  5. CELEXA [Concomitant]
     Active Substance: CITALOPRAM HYDROBROMIDE
  6. HYOSCYAMINE [Concomitant]
     Active Substance: HYOSCYAMINE
  7. FISH OIL [Concomitant]
     Active Substance: FISH OIL
  8. LEVOXYL [Concomitant]
     Active Substance: LEVOTHYROXINE SODIUM
  9. REGLAN [Concomitant]
     Active Substance: METOCLOPRAMIDE HYDROCHLORIDE
  10. ASPIRIN. [Concomitant]
     Active Substance: ASPIRIN
     Dates: start: 200806, end: 200909
  11. LIPITOR [Concomitant]
     Active Substance: ATORVASTATIN CALCIUM

REACTIONS (7)
  - Cerebral haemorrhage [Unknown]
  - Gastrointestinal haemorrhage [Unknown]
  - Haemorrhage [Unknown]
  - Purpura [Unknown]
  - Hepatic haemorrhage [Unknown]
  - Intestinal haemorrhage [Unknown]
  - Lung infection [Unknown]

NARRATIVE: CASE EVENT DATE: 20080604
